FAERS Safety Report 20066104 (Version 2)
Quarter: 2021Q4

REPORT INFORMATION
  Report Type: Report from Study
  Country: HU (occurrence: HU)
  Receive Date: 20211114
  Receipt Date: 20211115
  Transmission Date: 20220304
  Serious: Yes (Death, Hospitalization, Other)
  Sender: FDA-Public Use
  Company Number: HU-ABBVIE-21K-076-4157518-00

PATIENT
  Sex: Female

DRUGS (15)
  1. CARBIDOPA\LEVODOPA [Suspect]
     Active Substance: CARBIDOPA\LEVODOPA
     Indication: Parkinson^s disease
     Dosage: M DOSE: 5.2 ML CONTINUOUS DOSE DAYTIME 4.2 ML/HOUR; NIGHT  3.5 ML/HOUR; EXTRA DOSE 3.0 ML
     Route: 050
     Dates: start: 20200617
  2. CARBIDOPA\LEVODOPA [Suspect]
     Active Substance: CARBIDOPA\LEVODOPA
  3. NEUPRO [Concomitant]
     Active Substance: ROTIGOTINE
     Indication: Parkinson^s disease
     Route: 062
     Dates: start: 2018
  4. XANAX [Concomitant]
     Active Substance: ALPRAZOLAM
     Indication: Anxiety
     Dates: start: 2010
  5. MIRTAZAPINE [Concomitant]
     Active Substance: MIRTAZAPINE
     Indication: Affective disorder
     Dosage: 1 TABLET IN THE EVENING
     Route: 048
     Dates: start: 2018
  6. RILMENIDINE [Concomitant]
     Active Substance: RILMENIDINE
     Indication: Hypertension
     Dosage: 1 TABLET IN THE EVENING
     Route: 048
     Dates: start: 2018
  7. ZOLPIDEM TARTRATE [Concomitant]
     Active Substance: ZOLPIDEM TARTRATE
     Indication: Sleep disorder
     Dosage: 1 TABLET IN THE EVENING
     Route: 048
     Dates: start: 2019
  8. PANTOPRAZOLE [Concomitant]
     Active Substance: PANTOPRAZOLE
     Indication: Prophylaxis
     Route: 048
     Dates: start: 2010
  9. NEBIVOLOL [Concomitant]
     Active Substance: NEBIVOLOL
     Indication: Myocardial ischaemia
     Dosage: HALF TABLET TWO TIMES DAILY
     Route: 048
  10. AMLODIPINE BESYLATE\PERINDOPRIL ARGININE [Concomitant]
     Active Substance: AMLODIPINE BESYLATE\PERINDOPRIL ARGININE
     Indication: Myocardial ischaemia
     Dosage: 5 MG PERINDOPRIL, 5 MG AMLODIPINE / TABLET
     Route: 048
     Dates: start: 2015
  11. FUROSEMIDE [Concomitant]
     Active Substance: FUROSEMIDE
     Indication: Oedema peripheral
     Dosage: 1 TABLET ON TUESDAY; 1 TABLET ON FRIDAY
     Route: 048
  12. POTASSIUM CHLORIDE [Concomitant]
     Active Substance: POTASSIUM CHLORIDE
     Indication: Prophylaxis
     Route: 048
  13. FLECTOR RAPID [Concomitant]
     Indication: Back pain
     Route: 048
     Dates: start: 2019
  14. TIZANIDINE [Concomitant]
     Active Substance: TIZANIDINE
     Indication: Back pain
     Dosage: 1 TABLET IN THE EVENING
     Route: 048
     Dates: start: 2019
  15. ASA PROTECT PHARMAVIT [Concomitant]
     Indication: Prophylaxis
     Route: 048
     Dates: start: 2020

REACTIONS (6)
  - Death [Fatal]
  - General physical health deterioration [Not Recovered/Not Resolved]
  - Immobile [Unknown]
  - COVID-19 [Not Recovered/Not Resolved]
  - COVID-19 pneumonia [Not Recovered/Not Resolved]
  - Stoma site discharge [Not Recovered/Not Resolved]

NARRATIVE: CASE EVENT DATE: 20211101
